FAERS Safety Report 5088928-3 (Version None)
Quarter: 2006Q3

REPORT INFORMATION
  Report Type: 
  Country: None (occurrence: None)
  Receive Date: 20060825
  Receipt Date: 20060811
  Transmission Date: 20061208
  Serious: Yes (Other)
  Sender: FDA-Public Use
  Company Number: US-JNJFOC-20060805238

PATIENT
  Sex: Male
  Weight: 68.04 kg

DRUGS (5)
  1. MOTRIN [Suspect]
     Indication: PAIN
  2. DILANTIN [Interacting]
     Indication: CONVULSION
     Dosage: 100 MG INCREASED TO 400 MG DAILY
  3. ROBAXIN [Suspect]
     Indication: PAIN
  4. SKELAXIN [Suspect]
     Indication: PAIN
  5. VICODIN [Suspect]
     Indication: PAIN

REACTIONS (7)
  - ANTICONVULSANT DRUG LEVEL BELOW THERAPEUTIC [None]
  - BODY HEIGHT DECREASED [None]
  - CONVULSION [None]
  - DIARRHOEA [None]
  - DRUG INTERACTION [None]
  - GASTRITIS EROSIVE [None]
  - MALAISE [None]
